FAERS Safety Report 10686497 (Version 3)
Quarter: 2015Q1

REPORT INFORMATION
  Report Type: Report from Study
  Country: CO (occurrence: CO)
  Receive Date: 20150101
  Receipt Date: 20150115
  Transmission Date: 20150720
  Serious: Yes (Other)
  Sender: FDA-Public Use
  Company Number: CO-ROCHE-1498947

PATIENT
  Age: 65 Year
  Sex: Female
  Weight: 65 kg

DRUGS (6)
  1. AMLODIPINE [Concomitant]
     Active Substance: AMLODIPINE BESYLATE
  2. CEFROXADINE [Concomitant]
     Active Substance: CEFROXADINE
  3. LUCENTIS [Suspect]
     Active Substance: RANIBIZUMAB
     Indication: PRODUCT USED FOR UNKNOWN INDICATION
     Route: 050
  4. TIROXIN [Concomitant]
  5. LOSARTAN [Concomitant]
     Active Substance: LOSARTAN
  6. INSULIN [Concomitant]
     Active Substance: INSULIN NOS

REACTIONS (2)
  - Diabetic retinopathy [Unknown]
  - Retinal detachment [Recovered/Resolved]

NARRATIVE: CASE EVENT DATE: 20140901
